FAERS Safety Report 13964488 (Version 1)
Quarter: 2017Q3

REPORT INFORMATION
  Report Type: Spontaneous
  Country: US (occurrence: US)
  Receive Date: 20170913
  Receipt Date: 20170913
  Transmission Date: 20171128
  Serious: Yes (Hospitalization)
  Sender: FDA-Public Use
  Company Number: US-ROCHE-1991305

PATIENT
  Age: 67 Year
  Sex: Female

DRUGS (13)
  1. ZESTRIL [Concomitant]
     Active Substance: LISINOPRIL
  2. ACTONEL [Suspect]
     Active Substance: RISEDRONATE SODIUM
     Indication: OSTEOPOROSIS
     Route: 048
     Dates: start: 200312, end: 200703
  3. BONVIVA [Suspect]
     Active Substance: IBANDRONATE SODIUM
     Indication: OSTEOPOROSIS
     Route: 065
     Dates: start: 20070318, end: 20100119
  4. CELEBREX [Concomitant]
     Active Substance: CELECOXIB
  5. BONVIVA [Suspect]
     Active Substance: IBANDRONATE SODIUM
     Indication: OSTEOPENIA
     Route: 065
     Dates: start: 200405, end: 200604
  6. PROTONIX [Concomitant]
     Active Substance: PANTOPRAZOLE SODIUM
  7. ACTONEL [Suspect]
     Active Substance: RISEDRONATE SODIUM
     Indication: OSTEOPENIA
     Route: 048
     Dates: start: 200703, end: 201107
  8. FOSAMAX [Suspect]
     Active Substance: ALENDRONATE SODIUM
     Indication: OSTEOPENIA
     Route: 048
     Dates: start: 199601, end: 200312
  9. BONVIVA [Suspect]
     Active Substance: IBANDRONATE SODIUM
     Route: 065
     Dates: start: 20101213
  10. PRAVACHOL [Concomitant]
     Active Substance: PRAVASTATIN SODIUM
  11. BONVIVA [Suspect]
     Active Substance: IBANDRONATE SODIUM
     Route: 065
     Dates: start: 20110711
  12. BONVIVA [Suspect]
     Active Substance: IBANDRONATE SODIUM
     Route: 065
     Dates: start: 20120709
  13. FOSAMAX [Suspect]
     Active Substance: ALENDRONATE SODIUM
     Indication: OSTEOPOROSIS

REACTIONS (9)
  - Low turnover osteopathy [Unknown]
  - Emotional distress [Unknown]
  - Fall [Unknown]
  - Dyspepsia [Unknown]
  - Fracture displacement [Recovering/Resolving]
  - Pain in extremity [Recovering/Resolving]
  - Femur fracture [Recovering/Resolving]
  - Anxiety [Unknown]
  - Osteogenesis imperfecta [Unknown]

NARRATIVE: CASE EVENT DATE: 20070305
